FAERS Safety Report 8401916-1 (Version None)
Quarter: 2012Q2

REPORT INFORMATION
  Report Type: 
  Country: None (occurrence: None)
  Receive Date: 20120601
  Receipt Date: 20120521
  Transmission Date: 20120825
  Serious: Yes (Hospitalization, Other)
  Sender: FDA-Public Use
  Company Number: US-SANOFI-AVENTIS-2012SA036077

PATIENT
  Age: 73 Year
  Sex: Male
  Weight: 79 kg

DRUGS (25)
  1. PLAVIX [Suspect]
     Route: 048
     Dates: start: 20111229, end: 20120101
  2. MULTI-VITAMINS [Concomitant]
  3. PLAVIX [Suspect]
     Indication: STENT PLACEMENT
     Route: 048
     Dates: start: 20111229, end: 20120101
  4. PLAVIX [Suspect]
     Route: 048
     Dates: start: 20120101
  5. PLAVIX [Suspect]
     Route: 048
     Dates: start: 20120101
  6. ZETIA [Concomitant]
  7. ALLOPURINOL [Concomitant]
  8. FERGON [Concomitant]
  9. COZAAR [Concomitant]
  10. LASIX [Concomitant]
  11. WELCHOL [Concomitant]
     Dosage: 6 TABS DAILY
  12. ANDROGEL [Concomitant]
  13. PLAVIX [Suspect]
     Route: 048
     Dates: start: 20120101
  14. SOLU-MEDROL [Suspect]
     Route: 042
     Dates: start: 20120101
  15. METFORMIN HCL [Concomitant]
  16. VITAMIN D [Concomitant]
     Dosage: DOSE:20000 UNIT(S)
  17. GLIPIZIDE [Concomitant]
  18. ASPIRIN [Concomitant]
  19. COREG [Concomitant]
  20. NIASPAN [Concomitant]
  21. NITROSTAT [Concomitant]
  22. PLAVIX [Suspect]
     Indication: ANGIOPLASTY
     Route: 048
     Dates: start: 20111229, end: 20120101
  23. PRILOSEC [Concomitant]
  24. FOLIC ACID [Concomitant]
  25. SULAR [Concomitant]

REACTIONS (10)
  - LIVER DISORDER [None]
  - RASH [None]
  - WEIGHT DECREASED [None]
  - ADRENAL DISORDER [None]
  - CLOSTRIDIAL INFECTION [None]
  - DYSPNOEA [None]
  - DIARRHOEA [None]
  - HYPERSENSITIVITY [None]
  - RESPIRATORY FAILURE [None]
  - ANGIOEDEMA [None]
